FAERS Safety Report 24287583 (Version 2)
Quarter: 2024Q3

REPORT INFORMATION
  Report Type: Report from Study
  Country: US (occurrence: US)
  Receive Date: 20240905
  Receipt Date: 20240909
  Transmission Date: 20241017
  Serious: Yes (Hospitalization, Other)
  Sender: JAZZ
  Company Number: US-JAZZ PHARMACEUTICALS-2024-US-014112

PATIENT
  Sex: Male

DRUGS (1)
  1. EPIDIOLEX [Suspect]
     Active Substance: CANNABIDIOL
     Indication: Lennox-Gastaut syndrome
     Dosage: 2.5 MILLILITER, BID
     Route: 048
     Dates: start: 202303

REACTIONS (3)
  - Seizure [Recovered/Resolved]
  - Platelet count decreased [Recovered/Resolved]
  - Emergency care [Unknown]
